FAERS Safety Report 16863924 (Version 2)
Quarter: 2019Q4

REPORT INFORMATION
  Report Type: Report from Study
  Country: AR (occurrence: AR)
  Receive Date: 20190927
  Receipt Date: 20191120
  Transmission Date: 20200122
  Serious: Yes (Death, Hospitalization)
  Sender: FDA-Public Use
  Company Number: AR-BAYER-2019-158637

PATIENT
  Age: 82 Year
  Sex: Female

DRUGS (3)
  1. STIVARGA [Suspect]
     Active Substance: REGORAFENIB
     Indication: COLORECTAL CANCER METASTATIC
     Dosage: UNK
     Dates: start: 20190604, end: 201906
  2. STIVARGA [Suspect]
     Active Substance: REGORAFENIB
     Indication: COLORECTAL CANCER METASTATIC
     Dosage: 160 MG QD
     Dates: start: 20190613, end: 20190908
  3. STIVARGA [Suspect]
     Active Substance: REGORAFENIB
     Indication: COLORECTAL CANCER METASTATIC
     Dosage: UNK
     Dates: end: 20190913

REACTIONS (7)
  - Hepatic enzyme increased [Not Recovered/Not Resolved]
  - Palmar-plantar erythrodysaesthesia syndrome [Not Recovered/Not Resolved]
  - Hepatotoxicity [None]
  - Liver injury [Fatal]
  - Abdominal injury [Fatal]
  - Swelling [None]
  - Blood bilirubin increased [Fatal]

NARRATIVE: CASE EVENT DATE: 20190718
